FAERS Safety Report 5231257-5 (Version None)
Quarter: 2007Q1

REPORT INFORMATION
  Report Type: 
  Country: None (occurrence: None)
  Receive Date: 20070206
  Receipt Date: 20070131
  Transmission Date: 20070707
  Serious: Yes (Hospitalization)
  Sender: FDA-Public Use
  Company Number: HQWYE746616MAY05

PATIENT
  Sex: Male
  Weight: 91.25 kg

DRUGS (22)
  1. RAPAMUNE [Suspect]
     Indication: PROPHYLAXIS AGAINST TRANSPLANT REJECTION
     Route: 048
     Dates: start: 20050313
  2. PREDNISONE [Concomitant]
     Indication: PROPHYLAXIS AGAINST TRANSPLANT REJECTION
     Route: 048
  3. ACETAMINOPHEN [Concomitant]
     Dosage: 650 MG ONE TIME
     Route: 048
     Dates: start: 20050511
  4. ASPIRIN [Concomitant]
     Route: 048
     Dates: start: 20050511
  5. ATENOLOL [Concomitant]
     Route: 048
     Dates: start: 20050511
  6. ATORVASTATIN CALCIUM [Concomitant]
     Route: 048
     Dates: start: 20050511
  7. CLONIDINE [Concomitant]
     Route: 048
     Dates: start: 20050511
  8. DIPHENHYDRAMINE HCL [Concomitant]
     Route: 042
     Dates: start: 20050511
  9. EPOETIN ALFA [Concomitant]
     Dosage: 6000 ML EVERY MWF
     Route: 058
     Dates: start: 20050511
  10. FAMOTIDINE [Concomitant]
     Route: 048
     Dates: start: 20050511
  11. FERROUS SULFATE TAB [Concomitant]
     Route: 048
     Dates: start: 20050512
  12. FUROSEMIDE [Concomitant]
     Route: 042
     Dates: start: 20050512
  13. HUMULIN 70/30 [Concomitant]
     Dosage: 25 UNIT EVERY 1 DAY
     Route: 058
     Dates: start: 20050511, end: 20050511
  14. HUMULIN 70/30 [Concomitant]
     Dosage: 35 UNIT EVERY 1 DAY
     Route: 058
     Dates: start: 20050512
  15. NIFEDIPINE [Concomitant]
     Route: 048
     Dates: start: 20050511
  16. POTASSIUM CHLORIDE [Concomitant]
     Route: 048
     Dates: start: 20050511
  17. SPIRONOLACTONE [Concomitant]
     Route: 048
     Dates: start: 20050511
  18. SULFAMETHOXAZOLE + TRIMETHOPRIM [Concomitant]
     Dosage: 160-800 MG TABLET ONCE DAILY
     Route: 048
     Dates: start: 20050511
  19. TERAZOSIN [Concomitant]
     Route: 048
  20. HUMULIN 70/30 [Concomitant]
     Dosage: 2 UNIT EVERY 1 DAY
     Route: 058
     Dates: start: 20050511, end: 20050511
  21. HUMULIN 70/30 [Concomitant]
     Dosage: 4 UNIT EVERY 1 DAY
     Route: 058
     Dates: start: 20050512
  22. MYCOPHENOLATE MOFETIL [Concomitant]
     Indication: PROPHYLAXIS AGAINST TRANSPLANT REJECTION
     Route: 048

REACTIONS (15)
  - ARTERIOSCLEROSIS [None]
  - ASTHENIA [None]
  - ATRIAL FIBRILLATION [None]
  - BLOOD GLUCOSE INCREASED [None]
  - BLOOD POTASSIUM DECREASED [None]
  - BLOOD SODIUM DECREASED [None]
  - BLOOD UREA INCREASED [None]
  - DEPRESSED LEVEL OF CONSCIOUSNESS [None]
  - INTERSTITIAL LUNG DISEASE [None]
  - LYMPHOPENIA [None]
  - NO THERAPEUTIC RESPONSE [None]
  - NORMOCHROMIC NORMOCYTIC ANAEMIA [None]
  - PLATELET COUNT DECREASED [None]
  - PLEURAL EFFUSION [None]
  - PNEUMONIA [None]
